FAERS Safety Report 9214113 (Version 1)
Quarter: 2013Q2

REPORT INFORMATION
  Report Type: Spontaneous
  Country: US (occurrence: None)
  Receive Date: 20130404
  Receipt Date: 20130404
  Transmission Date: 20140414
  Serious: Yes (Other)
  Sender: FDA-Public Use
  Company Number: None

PATIENT
  Age: 51 Year
  Sex: Male
  Weight: 75 kg

DRUGS (1)
  1. INVEGA SUSTENNA 234MG AND 156MG JANSSEN [Suspect]
     Dosage: 234MG  1 TIME  IM
     Route: 030
     Dates: start: 20130321

REACTIONS (5)
  - Fall [None]
  - Laceration [None]
  - Mental status changes [None]
  - Amnesia [None]
  - Syncope [None]
